FAERS Safety Report 4487017-6 (Version None)
Quarter: 2004Q3

REPORT INFORMATION
  Report Type: 
  Country: None (occurrence: None)
  Receive Date: 20040921
  Receipt Date: 20040408
  Transmission Date: 20050211
  Serious: Yes (Hospitalization, Other)
  Sender: FDA-Public Use
  Company Number: 163-20785-04040212

PATIENT
  Age: 57 Year
  Sex: Male

DRUGS (5)
  1. THALOMID [Suspect]
     Indication: MULTIPLE MYELOMA
     Dosage: 150 MG, AT BEDTIME, ORAL
     Route: 048
     Dates: start: 20030101, end: 20030401
  2. VELCADE [Suspect]
     Indication: MULTIPLE MYELOMA
     Dosage: 1.3 MG/M2, EVERY 28 DAYS ON DAYS 1,4,8,11, INTRAVENOUS
     Route: 042
     Dates: start: 20040130, end: 20040305
  3. OXYCONTIN [Concomitant]
  4. LOVENOX [Concomitant]
  5. VELCADE [Concomitant]

REACTIONS (16)
  - ASTHENIA [None]
  - BACK PAIN [None]
  - CONFUSIONAL STATE [None]
  - DECUBITUS ULCER [None]
  - DEEP VEIN THROMBOSIS [None]
  - DISEASE PROGRESSION [None]
  - FAILURE TO THRIVE [None]
  - HYPERCALCAEMIA [None]
  - HYPOTENSION [None]
  - LOBAR PNEUMONIA [None]
  - LUNG INFILTRATION [None]
  - METABOLIC ENCEPHALOPATHY [None]
  - RENAL FAILURE ACUTE [None]
  - RENAL TUBULAR NECROSIS [None]
  - SINUSITIS [None]
  - SPINAL DISORDER [None]
